FAERS Safety Report 9677044 (Version 1)
Quarter: 2013Q4

REPORT INFORMATION
  Report Type: Spontaneous
  Country: US (occurrence: US)
  Receive Date: 20131108
  Receipt Date: 20131108
  Transmission Date: 20140711
  Serious: No
  Sender: FDA-Public Use
  Company Number: US-BIOGENIDEC-2013BI106526

PATIENT
  Age: 56 Year
  Sex: Female

DRUGS (8)
  1. AVONEX [Suspect]
     Indication: MULTIPLE SCLEROSIS
     Route: 030
     Dates: start: 20110329
  2. BENAZEPRIL HCL [Concomitant]
  3. CRESTOR [Concomitant]
  4. OMEPRAZOLE [Concomitant]
  5. OXYBUTYNIN CHLORIDE [Concomitant]
  6. PAXIL [Concomitant]
  7. WAL-ITIN [Concomitant]
  8. ZANAFLEX [Concomitant]

REACTIONS (1)
  - Influenza [Unknown]
